FAERS Safety Report 10133857 (Version 1)
Quarter: 2014Q2

REPORT INFORMATION
  Report Type: Spontaneous
  Country: US (occurrence: US)
  Receive Date: 20140428
  Receipt Date: 20140428
  Transmission Date: 20141212
  Serious: Yes (Hospitalization)
  Sender: FDA-Public Use
  Company Number: US-AMGEN INC.-USASP2014030051

PATIENT
  Age: 80 Year
  Sex: Female

DRUGS (3)
  1. PROLIA [Suspect]
     Indication: OSTEOPENIA
     Dosage: UNK
     Route: 065
     Dates: start: 20131016
  2. ONE A DAY WOMEN^S [Concomitant]
  3. TYLENOL                            /00020001/ [Concomitant]

REACTIONS (18)
  - Pain in jaw [Not Recovered/Not Resolved]
  - Chest discomfort [Unknown]
  - Abdominal pain upper [Unknown]
  - Myalgia [Recovered/Resolved]
  - Back pain [Not Recovered/Not Resolved]
  - Gait disturbance [Recovered/Resolved]
  - Lip swelling [Recovered/Resolved]
  - Lip pruritus [Unknown]
  - Pain [Unknown]
  - Parathyroid gland enlargement [Unknown]
  - Oesophageal pain [Unknown]
  - Oesophagitis [Unknown]
  - Swollen tongue [Recovered/Resolved]
  - Fall [Unknown]
  - Pain in extremity [Recovered/Resolved]
  - Swelling face [Recovered/Resolved]
  - Pruritus [Unknown]
  - Gastrointestinal disorder [Unknown]
